FAERS Safety Report 4791292-8 (Version None)
Quarter: 2005Q4

REPORT INFORMATION
  Report Type: 
  Country: None (occurrence: None)
  Receive Date: 20051007
  Receipt Date: 20051003
  Transmission Date: 20060501
  Serious: Yes (Death, Other)
  Sender: FDA-Public Use
  Company Number: 2005UW14816

PATIENT
  Sex: Female

DRUGS (2)
  1. ZESTRIL [Suspect]
     Route: 048
  2. STELAZINE [Suspect]

REACTIONS (2)
  - CEREBROVASCULAR ACCIDENT [None]
  - STARVATION [None]
